FAERS Safety Report 25821070 (Version 1)
Quarter: 2025Q3

REPORT INFORMATION
  Report Type: Spontaneous
  Country: US (occurrence: US)
  Receive Date: 20250919
  Receipt Date: 20250919
  Transmission Date: 20251021
  Serious: Yes (Hospitalization)
  Sender: ROCHE
  Company Number: US-ROCHE-10000388529

PATIENT
  Sex: Female

DRUGS (1)
  1. XOLAIR [Suspect]
     Active Substance: OMALIZUMAB
     Indication: Dermatitis atopic
     Route: 058
     Dates: start: 202103

REACTIONS (5)
  - Blood pressure increased [Unknown]
  - Swelling [Unknown]
  - Maternal exposure during pregnancy [Unknown]
  - Off label use [Unknown]
  - Maternal exposure before pregnancy [Unknown]
